FAERS Safety Report 6162544 (Version 2)
Quarter: 2019Q1

REPORT INFORMATION
  Report Type: Spontaneous
  Country: FR (occurrence: FR)
  Receive Date: 20061107
  Receipt Date: 20190128
  Transmission Date: 20190418
  Serious: Yes (Hospitalization)
  Sender: FDA-Public Use
  Company Number: PHRM2006FR02934

PATIENT
  Age: 86 Year
  Sex: Male

DRUGS (16)
  1. REMINYL [Concomitant]
     Active Substance: GALANTAMINE
     Indication: AGGRESSION
  2. OSTRAM [Concomitant]
     Active Substance: CALCIUM PHOSPHATE
     Indication: UNEVALUABLE EVENT
     Route: 065
  3. EQUANIL [Concomitant]
     Active Substance: MEPROBAMATE
     Indication: AGGRESSION
     Route: 065
  4. ZOMETA [Suspect]
     Active Substance: ZOLEDRONIC ACID
     Indication: UNEVALUABLE EVENT
     Dosage: UNK
     Route: 042
     Dates: start: 20060802
  5. CONTRAMAL [Concomitant]
     Active Substance: TRAMADOL HYDROCHLORIDE
     Indication: UNEVALUABLE EVENT
     Route: 065
  6. TENORMINE [Concomitant]
     Active Substance: ATENOLOL
     Indication: ESSENTIAL HYPERTENSION
     Route: 065
  7. PREVISCAN (FLUINDIONE) [Suspect]
     Active Substance: FLUINDIONE
     Indication: VISUAL IMPAIRMENT
     Dosage: 20 MG, UNK
     Route: 048
     Dates: start: 20060802
  8. TENORMINE [Concomitant]
     Active Substance: ATENOLOL
     Indication: UNEVALUABLE EVENT
  9. PREVISCAN (FLUINDIONE) [Suspect]
     Active Substance: FLUINDIONE
     Indication: CEREBRAL ARTERY EMBOLISM
  10. MOTILIUM [Suspect]
     Active Substance: DOMPERIDONE
     Indication: VOMITING
  11. REMINYL [Concomitant]
     Active Substance: GALANTAMINE
     Indication: PRESENILE DEMENTIA
     Dosage: UNK
     Route: 048
     Dates: start: 20060731
  12. AUGMENTIN [Suspect]
     Active Substance: AMOXICILLIN\CLAVULANATE POTASSIUM
     Indication: URINARY TRACT INFECTION
     Dosage: 500 MG, UNK
     Route: 048
     Dates: start: 20060731
  13. CIFLOX (CIPROFLOXACIN) [Suspect]
     Active Substance: CIPROFLOXACIN
     Indication: URINARY TRACT INFECTION
     Route: 048
     Dates: start: 20060731, end: 20060804
  14. MOTILIUM [Suspect]
     Active Substance: DOMPERIDONE
     Indication: NAUSEA
     Dosage: 10 MG, UNK
     Route: 048
     Dates: start: 20060731
  15. RENITEC [Concomitant]
     Active Substance: ENALAPRIL MALEATE
     Indication: UNEVALUABLE EVENT
     Route: 065
  16. INEXIUM [Concomitant]
     Active Substance: ESOMEPRAZOLE
     Indication: UNEVALUABLE EVENT
     Route: 065

REACTIONS (7)
  - Pyrexia [Unknown]
  - Pyrexia [None]
  - Eosinophilia [Unknown]
  - Vision blurred [Unknown]
  - Flushing [Unknown]
  - Rash [Recovering/Resolving]
  - Erythema [Unknown]

NARRATIVE: CASE EVENT DATE: 20060802
